FAERS Safety Report 8050887-9 (Version None)
Quarter: 2012Q1

REPORT INFORMATION
  Report Type: 
  Country: None (occurrence: None)
  Receive Date: 20120117
  Receipt Date: 20120109
  Transmission Date: 20120608
  Serious: Yes (Death, Hospitalization)
  Sender: FDA-Public Use
  Company Number: PHEH2011US011186

PATIENT
  Sex: Female

DRUGS (2)
  1. LISINOPRIL [Concomitant]
  2. VALTURNA [Suspect]
     Indication: HYPERTENSION
     Dosage: 1 DF (300MG ALISKIREN AND 320 MG VALSARTAN), QD
     Route: 048

REACTIONS (3)
  - DEATH [None]
  - RENAL FAILURE CHRONIC [None]
  - BLOOD CREATININE INCREASED [None]
